FAERS Safety Report 17952983 (Version 2)
Quarter: 2020Q3

REPORT INFORMATION
  Report Type: Spontaneous
  Country: US (occurrence: US)
  Receive Date: 20200627
  Receipt Date: 20200709
  Transmission Date: 20201103
  Serious: Yes (Other)
  Sender: FDA-Public Use
  Company Number: US-ROCHE-2631748

PATIENT
  Age: 52 Year
  Sex: Female

DRUGS (3)
  1. RITUXAN [Suspect]
     Active Substance: RITUXIMAB
     Indication: MULTIPLE SCLEROSIS
     Route: 065
     Dates: start: 2013, end: 201907
  2. AVONEX [Suspect]
     Active Substance: INTERFERON BETA-1A
     Indication: MULTIPLE SCLEROSIS
     Dosage: PERMANENTLY DISCONTINUED
     Route: 065
  3. TECFIDERA [Suspect]
     Active Substance: DIMETHYL FUMARATE
     Indication: MULTIPLE SCLEROSIS
     Route: 065
     Dates: start: 20130508, end: 20130607

REACTIONS (7)
  - Upper respiratory tract infection [Unknown]
  - Intentional product use issue [Unknown]
  - Infusion related reaction [Unknown]
  - Off label use [Unknown]
  - Breast cancer [Unknown]
  - Influenza like illness [Unknown]
  - Sinusitis [Unknown]

NARRATIVE: CASE EVENT DATE: 201911
